FAERS Safety Report 4990362-9 (Version None)
Quarter: 2006Q2

REPORT INFORMATION
  Report Type: 
  Country: None (occurrence: None)
  Receive Date: 20060502
  Receipt Date: 20060502
  Transmission Date: 20061013
  Serious: Yes (Death)
  Sender: FDA-Public Use
  Company Number: None

PATIENT
  Age: 54 Year
  Sex: Female

DRUGS (7)
  1. GEMZAR [Suspect]
     Indication: PANCREATIC CARCINOMA
     Dosage: 750 MG/M2 WEEKLY IV DRIP
     Route: 041
     Dates: start: 20050109, end: 20051031
  2. TAXOTERE [Suspect]
     Indication: PANCREATIC CARCINOMA
     Dosage: 30 MG/M2 WEEKLY IV DRIP
     Route: 041
     Dates: start: 20050109, end: 20051031
  3. XELODA [Suspect]
     Indication: PANCREATIC CARCINOMA
     Dosage: 1500 MG/M2/DAY TWICE DAILY PO
     Route: 048
     Dates: start: 20050112, end: 20051031
  4. AMBIEN [Concomitant]
  5. MORPHINE [Concomitant]
  6. ATIVAN [Concomitant]
  7. O2 [Concomitant]

REACTIONS (2)
  - INTESTINAL PERFORATION [None]
  - METASTASIS [None]
